FAERS Safety Report 16470469 (Version 1)
Quarter: 2019Q2

REPORT INFORMATION
  Report Type: Spontaneous
  Country: US (occurrence: US)
  Receive Date: 20190624
  Receipt Date: 20190624
  Transmission Date: 20190711
  Serious: Yes (Life-Threatening, Hospitalization, Other)
  Sender: FDA-Public Use
  Company Number: US-MYLANLABS-2019M1057621

PATIENT
  Age: 41 Year
  Sex: Male

DRUGS (1)
  1. LEVOTHYROXINE. [Suspect]
     Active Substance: LEVOTHYROXINE
     Indication: HYPOTHYROIDISM
     Dosage: 50 MICROCG
     Route: 048

REACTIONS (5)
  - Condition aggravated [Recovering/Resolving]
  - Cardiomyopathy [Recovering/Resolving]
  - Myxoedema coma [Recovering/Resolving]
  - Coronary artery disease [Recovering/Resolving]
  - Cardiogenic shock [Recovering/Resolving]
